FAERS Safety Report 21936442 (Version 1)
Quarter: 2023Q1

REPORT INFORMATION
  Report Type: Report from Study
  Country: US (occurrence: US)
  Receive Date: 20230201
  Receipt Date: 20230201
  Transmission Date: 20230418
  Serious: No
  Sender: FDA-Public Use
  Company Number: US-INCYTE CORPORATION-2020IN012752

PATIENT

DRUGS (2)
  1. PEMIGATINIB [Suspect]
     Active Substance: PEMIGATINIB
     Indication: Cholangiocarcinoma
     Dosage: 13.5 MILLIGRAM, QD ON DAYS 1-14 EVERY 21 DAYS
     Route: 048
     Dates: start: 202007
  2. PEMIGATINIB [Suspect]
     Active Substance: PEMIGATINIB
     Dosage: 13.5 MILLIGRAM, 14 DAYS ON, 7 DAYS OFF
     Route: 065
     Dates: start: 20201228

REACTIONS (7)
  - Taste disorder [Unknown]
  - Weight decreased [Unknown]
  - Decreased appetite [Unknown]
  - Stomatitis [Unknown]
  - Onychomadesis [Unknown]
  - Alopecia [Unknown]
  - Blood creatinine increased [Unknown]
